FAERS Safety Report 24449059 (Version 2)
Quarter: 2024Q4

REPORT INFORMATION
  Report Type: Spontaneous
  Country: US (occurrence: US)
  Receive Date: 20241017
  Receipt Date: 20241113
  Transmission Date: 20250114
  Serious: No
  Sender: ABBVIE
  Company Number: US-ABBVIE-5959456

PATIENT
  Sex: Male

DRUGS (2)
  1. HUMIRA [Suspect]
     Active Substance: ADALIMUMAB
     Indication: Psoriasis
     Dosage: FORM STRENGTH: 40 MILLIGRAM, FREQUENCY: ONCE TO TWICE A MONTH
     Route: 058
  2. HUMIRA [Suspect]
     Active Substance: ADALIMUMAB
     Indication: Eczema

REACTIONS (4)
  - Dermatitis allergic [Recovering/Resolving]
  - Off label use [Unknown]
  - Pruritus allergic [Recovering/Resolving]
  - Off label use [Unknown]
